FAERS Safety Report 5566457-8 (Version None)
Quarter: 2007Q4

REPORT INFORMATION
  Report Type: 
  Country: None (occurrence: None)
  Receive Date: 20071219
  Receipt Date: 20071213
  Transmission Date: 20080405
  Serious: Yes (Hospitalization)
  Sender: FDA-Public Use
  Company Number: FR-WYE-H01707707

PATIENT
  Age: 79 Year
  Sex: Female

DRUGS (18)
  1. INIPOMP [Suspect]
     Dosage: ^DF^
     Route: 048
     Dates: end: 20070924
  2. STILNOX [Suspect]
     Dosage: 10 MG - FREQUENCY UNSPECIFIED
     Route: 048
     Dates: start: 20061001, end: 20070924
  3. MONO-TILDIEM [Suspect]
     Dosage: ^DF^
     Dates: start: 20060915, end: 20070923
  4. DI-ANTALVIC [Suspect]
     Dosage: ^DF^
     Route: 048
     Dates: end: 20070923
  5. LAROXYL [Suspect]
     Dosage: 40 MG - DOSE AND FREQUENCY UNSPECIFIED
     Route: 048
     Dates: end: 20070923
  6. AMARYL [Suspect]
     Dosage: ^DF^
     Dates: start: 20060915, end: 20070924
  7. PAROXETINE HCL [Suspect]
     Dosage: ^DF^
     Route: 048
     Dates: end: 20070924
  8. DIFFU K [Suspect]
     Dosage: 600 MG - FREQUENCY UNSPECIFIED
     Dates: end: 20070923
  9. GLYCERYL TRINITRATE [Concomitant]
     Dosage: ^DF^
     Route: 062
     Dates: start: 20060901
  10. LEVOTHYROX [Concomitant]
     Dosage: 25 - DOSE AND FREQUENCY NOT SPECIFIED
     Route: 048
     Dates: start: 20070901, end: 20070101
  11. LEVOTHYROX [Concomitant]
     Dosage: UNKNOWN
     Dates: start: 20071003
  12. OGAST [Concomitant]
     Dosage: ^DF^
     Route: 048
     Dates: start: 20060901
  13. LOVENOX [Concomitant]
     Dosage: ^DF^
     Dates: start: 20061001
  14. FORLAX [Concomitant]
     Dosage: ^DF^
     Route: 048
  15. ACARBOSE [Concomitant]
     Dosage: ^DF^
     Route: 048
     Dates: end: 20070924
  16. ACARBOSE [Concomitant]
     Dosage: ^DF^
     Route: 048
     Dates: start: 20071003
  17. DANATROL [Suspect]
     Dosage: 200 MG - FREQUENCY NOT SPECIFIED
     Route: 048
     Dates: start: 20050414, end: 20070923
  18. DANATROL [Suspect]
     Dosage: 200 MG - FREQUENCY NOT SPECIFIED
     Route: 048
     Dates: start: 20050414, end: 20070923

REACTIONS (2)
  - CHOLELITHIASIS [None]
  - CHOLESTASIS [None]
